FAERS Safety Report 7148821-9 (Version None)
Quarter: 2010Q4

REPORT INFORMATION
  Report Type: 
  Country: None (occurrence: None)
  Receive Date: 20101209
  Receipt Date: 20101201
  Transmission Date: 20110411
  Serious: Yes (Other)
  Sender: FDA-Public Use
  Company Number: PHHY2010AR82401

PATIENT
  Sex: Female

DRUGS (2)
  1. TRILEPTAL [Suspect]
     Indication: CONVULSION
     Dosage: 300 MG, BID
     Dates: start: 20080101, end: 20080101
  2. TRILEPTAL [Suspect]
     Dosage: UNK

REACTIONS (2)
  - BREAST CANCER [None]
  - BREAST CYST EXCISION [None]
